FAERS Safety Report 6697384-0 (Version None)
Quarter: 2010Q2

REPORT INFORMATION
  Report Type: 
  Country: None (occurrence: None)
  Receive Date: 20100426
  Receipt Date: 20100412
  Transmission Date: 20101027
  Serious: Yes (Disabling)
  Sender: FDA-Public Use
  Company Number: GB-B.I. PHARMACEUTICALS,INC./RIDGEFIELD-2010-UK-00342UK

PATIENT
  Age: 62 Year
  Sex: Female
  Weight: 66.5 kg

DRUGS (4)
  1. PRAMIPEXOLE DIHYDROCHLORIDE [Suspect]
     Indication: PARKINSONIAN REST TREMOR
     Dosage: 1500 MCG
     Route: 048
     Dates: start: 20090622, end: 20090921
  2. ATENOLOL [Concomitant]
     Indication: HYPERTENSION
     Dosage: 50 MG
     Route: 048
     Dates: start: 20030611
  3. BENDROFLUMETHAZIDE [Concomitant]
     Indication: HYPERTENSION
     Dosage: 2.5 MG
     Route: 048
     Dates: start: 20030611
  4. LOSARTAN POTASSIUM [Concomitant]
     Indication: HYPERTENSION
     Dosage: 100 MG
     Route: 048
     Dates: start: 20040413

REACTIONS (7)
  - ABASIA [None]
  - DIARRHOEA [None]
  - EXERCISE TOLERANCE DECREASED [None]
  - GASTROOESOPHAGEAL REFLUX DISEASE [None]
  - NAUSEA [None]
  - PALPITATIONS [None]
  - VOMITING [None]
